FAERS Safety Report 5257495-3 (Version None)
Quarter: 2007Q1

REPORT INFORMATION
  Report Type: 
  Country: None (occurrence: None)
  Receive Date: 20070307
  Receipt Date: 20060823
  Transmission Date: 20070707
  Serious: No
  Sender: FDA-Public Use
  Company Number: US-GLAXOSMITHKLINE-A0617838A

PATIENT
  Sex: Female

DRUGS (2)
  1. REQUIP [Suspect]
     Indication: RESTLESS LEGS SYNDROME
     Dosage: 1MG AT NIGHT
     Route: 048
  2. PROZAC [Concomitant]

REACTIONS (4)
  - DRUG INEFFECTIVE [None]
  - NAUSEA [None]
  - RESTLESS LEGS SYNDROME [None]
  - SOMNOLENCE [None]
